FAERS Safety Report 14595311 (Version 1)
Quarter: 2018Q1

REPORT INFORMATION
  Report Type: Spontaneous
  Country: US (occurrence: US)
  Receive Date: 20180302
  Receipt Date: 20180302
  Transmission Date: 20180509
  Serious: No
  Sender: FDA-Public Use
  Company Number: US-AKORN PHARMACEUTICALS-2018AKN00017

PATIENT
  Age: 25 Year
  Sex: Female
  Weight: 52.15 kg

DRUGS (2)
  1. MYORISAN [Suspect]
     Active Substance: ISOTRETINOIN
     Indication: ACNE
     Dosage: 40 MG, 1X/DAY
     Dates: start: 20170824, end: 20171229
  2. UNSPECIFIED MULTIVITAMINS [Concomitant]

REACTIONS (3)
  - Off label use [Recovered/Resolved]
  - Vision blurred [Unknown]
  - Migraine [Unknown]

NARRATIVE: CASE EVENT DATE: 2017
